FAERS Safety Report 12177309 (Version 3)
Quarter: 2016Q3

REPORT INFORMATION
  Report Type: Spontaneous
  Country: US (occurrence: US)
  Receive Date: 20160314
  Receipt Date: 20160801
  Transmission Date: 20161109
  Serious: Yes (Other)
  Sender: FDA-Public Use
  Company Number: US-TEVA-642075USA

PATIENT
  Sex: Female

DRUGS (1)
  1. ZECUITY [Suspect]
     Active Substance: SUMATRIPTAN SUCCINATE
     Route: 062
     Dates: start: 201602, end: 201602

REACTIONS (8)
  - Device leakage [Unknown]
  - Application site discolouration [Not Recovered/Not Resolved]
  - Device battery issue [Unknown]
  - Application site scar [Not Recovered/Not Resolved]
  - Application site burn [Not Recovered/Not Resolved]
  - Application site pain [Recovered/Resolved]
  - Application site erythema [Recovered/Resolved]
  - Device use error [Unknown]
